FAERS Safety Report 5329898-X (Version None)
Quarter: 2007Q2

REPORT INFORMATION
  Report Type: 
  Country: None (occurrence: None)
  Receive Date: 20070517
  Receipt Date: 20070517
  Transmission Date: 20071010
  Serious: Yes (Life-Threatening, Other)
  Sender: FDA-Public Use
  Company Number: None

PATIENT
  Age: 50 Year
  Sex: Male
  Weight: 111.1313 kg

DRUGS (3)
  1. BUPROPION HCL [Suspect]
     Indication: DEPRESSION
     Dosage: 300 MG 1 DAY PO
     Route: 048
     Dates: start: 20070210, end: 20070513
  2. BUPROPION HCL [Suspect]
     Indication: PAIN
     Dosage: 300 MG 1 DAY PO
     Route: 048
     Dates: start: 20070210, end: 20070513
  3. BUPROPION HCL [Suspect]
     Indication: SURGERY
     Dosage: 300 MG 1 DAY PO
     Route: 048
     Dates: start: 20070210, end: 20070513

REACTIONS (12)
  - CHEST PAIN [None]
  - CRYING [None]
  - DYSKINESIA [None]
  - HYPERHIDROSIS [None]
  - INSOMNIA [None]
  - NAUSEA [None]
  - NIGHTMARE [None]
  - PALPITATIONS [None]
  - PHARMACEUTICAL PRODUCT COMPLAINT [None]
  - SCREAMING [None]
  - THERAPEUTIC RESPONSE UNEXPECTED WITH DRUG SUBSTITUTION [None]
  - VISION BLURRED [None]
